FAERS Safety Report 9788463 (Version 1)
Quarter: 2013Q4

REPORT INFORMATION
  Report Type: Spontaneous
  Country: BR (occurrence: BR)
  Receive Date: 20131230
  Receipt Date: 20131230
  Transmission Date: 20140711
  Serious: Yes (Other)
  Sender: FDA-Public Use
  Company Number: BR-PFIZER INC-2013370040

PATIENT
  Age: 47 Year
  Sex: Female

DRUGS (2)
  1. LYRICA [Suspect]
     Indication: SPINAL PAIN
     Dosage: STRENGTH 150 MG
     Route: 048
  2. LYRICA [Suspect]
     Dosage: 75 MG, DAILY
     Route: 048

REACTIONS (3)
  - Fall [Unknown]
  - Bone swelling [Unknown]
  - Gait disturbance [Unknown]
